FAERS Safety Report 6611621-X (Version None)
Quarter: 2010Q1

REPORT INFORMATION
  Report Type: 
  Country: None (occurrence: None)
  Receive Date: 20100303
  Receipt Date: 20100222
  Transmission Date: 20100710
  Serious: Yes (Other)
  Sender: FDA-Public Use
  Company Number: PL-ASTRAZENECA-2010SE08454

PATIENT
  Age: 17065 Day
  Sex: Male

DRUGS (3)
  1. BUDESONIDE FORMOTEROL [Suspect]
     Indication: CHRONIC OBSTRUCTIVE PULMONARY DISEASE
     Dosage: BUDESONIDE/ FORMOTEROL 320/9 UG DAILY
     Route: 055
     Dates: start: 20100212
  2. INHIBACE [Concomitant]
     Indication: HYPERTENSION
     Route: 048
  3. METOCARD [Concomitant]
     Indication: ISCHAEMIA
     Route: 048

REACTIONS (1)
  - PNEUMONIA [None]
